FAERS Safety Report 18605482 (Version 1)
Quarter: 2020Q4

REPORT INFORMATION
  Report Type: Spontaneous
  Country: IT (occurrence: IT)
  Receive Date: 20201211
  Receipt Date: 20201211
  Transmission Date: 20210114
  Serious: Yes (Hospitalization)
  Sender: FDA-Public Use
  Company Number: IT-SA-2020SA350277

PATIENT

DRUGS (10)
  1. PLAVIX [Suspect]
     Active Substance: CLOPIDOGREL BISULFATE
     Dosage: 75 MG, QD
     Route: 048
     Dates: start: 20200101, end: 20201007
  2. FOLIC ACID. [Concomitant]
     Active Substance: FOLIC ACID
  3. LASIX [Concomitant]
     Active Substance: FUROSEMIDE
     Dosage: 50 MG
  4. CONGESCOR [Concomitant]
     Active Substance: BISOPROLOL
     Dosage: 2.5 MG
  5. CIPRALEX [Concomitant]
     Active Substance: ESCITALOPRAM OXALATE
  6. REMERON [Concomitant]
     Active Substance: MIRTAZAPINE
     Dosage: 30 MG
  7. ENTRESTO [Concomitant]
     Active Substance: SACUBITRIL\VALSARTAN
     Dosage: 1 DF
  8. ACETYLSALICYLIC ACID [Suspect]
     Active Substance: ASPIRIN
     Route: 065
     Dates: start: 20200101, end: 20201007
  9. PANTOPRAZOLE [Concomitant]
     Active Substance: PANTOPRAZOLE
     Dosage: 20 MG
  10. TRITTICO [Concomitant]
     Active Substance: TRAZODONE HYDROCHLORIDE
     Dosage: 75 MG

REACTIONS (2)
  - Strangury [Unknown]
  - Haematuria [Unknown]

NARRATIVE: CASE EVENT DATE: 20201007
